FAERS Safety Report 11866501 (Version 1)
Quarter: 2015Q4

REPORT INFORMATION
  Report Type: Spontaneous
  Country: VN (occurrence: VN)
  Receive Date: 20151224
  Receipt Date: 20151224
  Transmission Date: 20160305
  Serious: Yes (Other)
  Sender: FDA-Public Use
  Company Number: VN-ROCHE-1680906

PATIENT
  Age: 82 Year
  Sex: Male
  Weight: 38 kg

DRUGS (6)
  1. HERCEPTIN [Suspect]
     Active Substance: TRASTUZUMAB
     Indication: METASTASES TO BONE
     Dosage: D1 OF 3 WEEK CYCLE MAINTENANCE.
     Route: 041
     Dates: start: 2015
  2. TAXOTERE [Suspect]
     Active Substance: DOCETAXEL
     Indication: GASTRIC CANCER
     Dosage: D1 OF 14- DAY CYCLE
     Route: 065
     Dates: start: 2015
  3. ZOMETA [Suspect]
     Active Substance: ZOLEDRONIC ACID
     Indication: METASTASES TO BONE
  4. ZOMETA [Suspect]
     Active Substance: ZOLEDRONIC ACID
     Indication: GASTRIC CANCER
     Route: 041
     Dates: start: 2015
  5. HERCEPTIN [Suspect]
     Active Substance: TRASTUZUMAB
     Indication: GASTRIC CANCER
     Dosage: D1 OF 3 WEEK CYCLE FOR 6 CYCLES.
     Route: 041
     Dates: start: 2015, end: 2015
  6. TAXOTERE [Suspect]
     Active Substance: DOCETAXEL
     Indication: METASTASES TO BONE

REACTIONS (4)
  - Off label use [Unknown]
  - Transaminases increased [Recovered/Resolved]
  - Lung neoplasm [Recovered/Resolved]
  - Neutropenia [Recovered/Resolved]

NARRATIVE: CASE EVENT DATE: 2015
